FAERS Safety Report 18521058 (Version 2)
Quarter: 2020Q4

REPORT INFORMATION
  Report Type: Spontaneous
  Country: JP (occurrence: JP)
  Receive Date: 20201119
  Receipt Date: 20201209
  Transmission Date: 20210114
  Serious: Yes (Other)
  Sender: FDA-Public Use
  Company Number: JP-GLAXOSMITHKLINE-JP2020JPN225855

PATIENT
  Age: 6 Decade
  Sex: Female

DRUGS (2)
  1. BENLYSTA [Suspect]
     Active Substance: BELIMUMAB
     Dosage: UNK
     Route: 041
     Dates: start: 202010
  2. MYCOPHENOLATE MOFETIL CAPSULE [Concomitant]
     Dosage: UNK

REACTIONS (1)
  - Neoplasm malignant [Unknown]
